FAERS Safety Report 4894692-0 (Version None)
Quarter: 2006Q1

REPORT INFORMATION
  Report Type: 
  Country: None (occurrence: None)
  Receive Date: 20060130
  Receipt Date: 20050714
  Transmission Date: 20060701
  Serious: Yes (Other)
  Sender: FDA-Public Use
  Company Number: JP-SP-2005-01364

PATIENT
  Sex: Male

DRUGS (1)
  1. IMMUCYST [Suspect]
     Indication: BLADDER CANCER
     Route: 043

REACTIONS (4)
  - BOVINE TUBERCULOSIS [None]
  - EPIDIDYMITIS [None]
  - TESTICULAR PAIN [None]
  - TESTICULAR SWELLING [None]
